FAERS Safety Report 19504305 (Version 1)
Quarter: 2021Q3

REPORT INFORMATION
  Report Type: Spontaneous
  Country: JP (occurrence: JP)
  Receive Date: 20210708
  Receipt Date: 20210708
  Transmission Date: 20211014
  Serious: Yes (Other)
  Sender: FDA-Public Use
  Company Number: JP-TECHDOW-2021TECHDOW000712

PATIENT
  Age: 76 Year
  Sex: Male
  Weight: 44.6 kg

DRUGS (1)
  1. HEPARIN SODIUM INJECTION, USP (PRESERVATIVE FREE) [Suspect]
     Active Substance: HEPARIN SODIUM
     Indication: ANTICOAGULANT THERAPY

REACTIONS (2)
  - Cerebral infarction [Unknown]
  - Heparin-induced thrombocytopenia [Recovered/Resolved]
